FAERS Safety Report 14410654 (Version 2)
Quarter: 2018Q1

REPORT INFORMATION
  Report Type: Report from Study
  Country: ZA (occurrence: ZA)
  Receive Date: 20180119
  Receipt Date: 20180205
  Transmission Date: 20180509
  Serious: Yes (Death, Hospitalization)
  Sender: FDA-Public Use
  Company Number: ZA-ROCHE-2054523

PATIENT
  Age: 25 Year
  Sex: Female

DRUGS (7)
  1. MABTHERA [Suspect]
     Active Substance: RITUXIMAB
     Indication: RHEUMATOID ARTHRITIS
     Dosage: 1000MG X 2 WEEKS LATER
     Route: 042
     Dates: start: 20171101, end: 20171115
  2. MABTHERA [Suspect]
     Active Substance: RITUXIMAB
     Indication: VASCULITIS
  3. PREDNISONE. [Concomitant]
     Active Substance: PREDNISONE
     Indication: VASCULITIS
     Route: 065
  4. PREDNISONE. [Concomitant]
     Active Substance: PREDNISONE
     Indication: RHEUMATOID ARTHRITIS
  5. METHOTREXATE. [Concomitant]
     Active Substance: METHOTREXATE
     Indication: VASCULITIS
     Route: 065
  6. METHOTREXATE. [Concomitant]
     Active Substance: METHOTREXATE
     Indication: RHEUMATOID ARTHRITIS
  7. ISONIAZID/PYRIDOXINE HYDROCHLORIDE [Concomitant]
     Indication: ANTIBIOTIC PROPHYLAXIS
     Route: 065
     Dates: start: 201709, end: 201711

REACTIONS (1)
  - Respiratory distress [Fatal]

NARRATIVE: CASE EVENT DATE: 20171121
